FAERS Safety Report 11101964 (Version 2)
Quarter: 2015Q2

REPORT INFORMATION
  Report Type: Report from Study
  Country: US (occurrence: US)
  Receive Date: 20150510
  Receipt Date: 20150512
  Transmission Date: 20150821
  Serious: No
  Sender: FDA-Public Use
  Company Number: US-ASTRAZENECA-2015SE40170

PATIENT
  Age: 454 Month
  Sex: Female
  Weight: 65.8 kg

DRUGS (5)
  1. SEROQUEL [Suspect]
     Active Substance: QUETIAPINE FUMARATE
     Indication: BIPOLAR DISORDER
     Route: 048
  2. SEROQUEL [Suspect]
     Active Substance: QUETIAPINE FUMARATE
     Indication: BIPOLAR DISORDER
     Route: 048
  3. TRAZODONE [Concomitant]
     Active Substance: TRAZODONE HYDROCHLORIDE
     Indication: SLEEP DISORDER
  4. SEROQUEL [Suspect]
     Active Substance: QUETIAPINE FUMARATE
     Indication: BIPOLAR DISORDER
     Route: 048
  5. VISTARIL [Concomitant]
     Active Substance: HYDROXYZINE PAMOATE
     Indication: ANXIETY

REACTIONS (11)
  - Somnolence [Unknown]
  - Mental impairment [Unknown]
  - Stress [Unknown]
  - Insomnia [Unknown]
  - Irritability [Unknown]
  - Off label use [Unknown]
  - Disturbance in attention [Unknown]
  - Drug dose omission [Unknown]
  - Mania [Unknown]
  - Crying [Unknown]
  - Tachyphrenia [Unknown]

NARRATIVE: CASE EVENT DATE: 201504
